FAERS Safety Report 25594731 (Version 1)
Quarter: 2025Q3

REPORT INFORMATION
  Report Type: Spontaneous
  Country: EU (occurrence: EU)
  Receive Date: 20250723
  Receipt Date: 20250723
  Transmission Date: 20251020
  Serious: Yes (Hospitalization, Other)
  Sender: AUROBINDO
  Company Number: EU-AFSSAPS-AN2025000909

PATIENT
  Age: 34 Year
  Sex: Female

DRUGS (5)
  1. RISPERIDONE [Suspect]
     Active Substance: RISPERIDONE
     Indication: Delirium
     Dosage: 2 MILLIGRAM, ONCE A DAY
     Route: 048
     Dates: start: 20250603, end: 20250610
  2. DIAZEPAM [Suspect]
     Active Substance: DIAZEPAM
     Indication: Anxiety
     Dosage: 90 GTT DROPS, ONCE A DAY
     Route: 048
     Dates: start: 20250605, end: 20250611
  3. DIAZEPAM [Suspect]
     Active Substance: DIAZEPAM
     Dosage: 30 GTT DROPS, ONCE A DAY
     Route: 048
     Dates: start: 20250612
  4. VENLAFAXINE [Suspect]
     Active Substance: VENLAFAXINE HYDROCHLORIDE
     Indication: Depression
     Dosage: 75 MILLIGRAM, ONCE A DAY
     Route: 048
     Dates: start: 20250605, end: 20250611
  5. SERTRALINE [Concomitant]
     Active Substance: SERTRALINE HYDROCHLORIDE
     Indication: Product used for unknown indication
     Route: 048
     Dates: start: 20250508, end: 20250605

REACTIONS (2)
  - Brain stem syndrome [Not Recovered/Not Resolved]
  - Extrapyramidal disorder [Not Recovered/Not Resolved]

NARRATIVE: CASE EVENT DATE: 20250606
